FAERS Safety Report 8886715 (Version 7)
Quarter: 2013Q1

REPORT INFORMATION
  Report Type: Report from Study
  Country: US (occurrence: US)
  Receive Date: 20121105
  Receipt Date: 20130222
  Transmission Date: 20140127
  Serious: Yes (Other)
  Sender: FDA-Public Use
  Company Number: US-VERTEX PHARMACEUTICAL INC.-2012-024007

PATIENT
  Age: 59 Year
  Sex: Female
  Weight: 63 kg

DRUGS (8)
  1. VX-950 (TELAPREVIR) [Suspect]
     Indication: HEPATITIS C
     Dosage: 750 MG, TID
     Route: 048
     Dates: start: 20121025, end: 20130117
  2. PEGASYS [Suspect]
     Indication: HEPATITIS C
     Dosage: 180 ?G, QW
     Route: 058
     Dates: start: 20121025, end: 20121115
  3. PEGASYS [Suspect]
     Dosage: 90 ?G, QW
     Route: 058
     Dates: start: 20121213
  4. RIBAVIRIN [Suspect]
     Indication: HEPATITIS C
     Dosage: 600 MG AM, 400 MG PM
     Route: 048
     Dates: start: 20121025
  5. LORAZEPAM [Concomitant]
     Indication: STRESS
     Dosage: 0.5 MG, BID
     Route: 048
  6. LORAZEPAM [Concomitant]
     Indication: ANXIETY
  7. CITALOPRAM [Concomitant]
     Indication: STRESS
     Dosage: 10 MG, QD
     Route: 048
     Dates: start: 20121121
  8. CITALOPRAM [Concomitant]
     Indication: ANXIETY

REACTIONS (17)
  - White blood cell count decreased [Not Recovered/Not Resolved]
  - Influenza like illness [Recovered/Resolved]
  - Insomnia [Not Recovered/Not Resolved]
  - Muscle twitching [Not Recovered/Not Resolved]
  - Oropharyngeal pain [Recovered/Resolved]
  - Abdominal pain [Not Recovered/Not Resolved]
  - Ear pain [Not Recovered/Not Resolved]
  - Parosmia [Recovered/Resolved]
  - Eczema [Not Recovered/Not Resolved]
  - Thyroid function test abnormal [Recovered/Resolved]
  - Fatigue [Recovered/Resolved]
  - Platelet count decreased [Not Recovered/Not Resolved]
  - Dysgeusia [Not Recovered/Not Resolved]
  - Vomiting [Recovered/Resolved]
  - Nausea [Recovered/Resolved]
  - Rash [Not Recovered/Not Resolved]
  - Pruritus [Not Recovered/Not Resolved]
